FAERS Safety Report 18458413 (Version 1)
Quarter: 2020Q4

REPORT INFORMATION
  Report Type: Spontaneous
  Country: US (occurrence: US)
  Receive Date: 20201103
  Receipt Date: 20201103
  Transmission Date: 20210114
  Serious: Yes (Hospitalization)
  Sender: FDA-Public Use
  Company Number: US-VERTEX PHARMACEUTICALS-2020-021656

PATIENT
  Age: 41 Year
  Sex: Female
  Weight: 44 kg

DRUGS (14)
  1. TRIKAFTA [Suspect]
     Active Substance: ELEXACAFTOR\IVACAFTOR\TEZACAFTOR
     Indication: CYSTIC FIBROSIS
     Dosage: 2 ORANGE TAB (100 MG ELEXA/ 50 MG TEZA/ 75 MG IVA) AM; 1 BLUE TAB (150MG IVA) PM
     Route: 048
  2. LEVOTHYROXINE. [Concomitant]
     Active Substance: LEVOTHYROXINE
     Dosage: 100 MICROGRAM
  3. AZITHROMYCIN ANHYDROUS. [Concomitant]
     Active Substance: AZITHROMYCIN ANHYDROUS
     Dosage: 250 MG/5ML SUSPENSION
  4. URSODIOL. [Concomitant]
     Active Substance: URSODIOL
     Dosage: 300 MILLIGRAM
  5. FEREX [Concomitant]
     Dosage: 150 CAPSULE
  6. VITAMIN C [Concomitant]
     Active Substance: ASCORBIC ACID
     Dosage: 500 MILLIGRAM
  7. CLONIDINE. [Concomitant]
     Active Substance: CLONIDINE
     Dosage: 0.1 MG/24 HR PATCH
  8. PREDNISONE. [Concomitant]
     Active Substance: PREDNISONE
     Dosage: 10 MILLIGRAM
  9. CREON [Concomitant]
     Active Substance: PANCRELIPASE AMYLASE\PANCRELIPASE LIPASE\PANCRELIPASE PROTEASE
     Dosage: 12K-38K-60K
  10. BACTRIM [Concomitant]
     Active Substance: SULFAMETHOXAZOLE\TRIMETHOPRIM
     Dosage: 400 MG-80 MG
  11. HUMALOG [Concomitant]
     Active Substance: INSULIN LISPRO
     Dosage: UNK
  12. ATORVASTATIN [Concomitant]
     Active Substance: ATORVASTATIN
     Dosage: 20 MILLIGRAM
  13. RAPAMUNE [Concomitant]
     Active Substance: SIROLIMUS
     Dosage: 1 MILLIGRAM
  14. PROGRAF [Concomitant]
     Active Substance: TACROLIMUS
     Dosage: 1 MILLIGRAM

REACTIONS (1)
  - Hospitalisation [Unknown]

NARRATIVE: CASE EVENT DATE: 20201023
